FAERS Safety Report 11282145 (Version 10)
Quarter: 2019Q1

REPORT INFORMATION
  Report Type: Report from Study
  Country: FR (occurrence: FR)
  Receive Date: 20150720
  Receipt Date: 20190304
  Transmission Date: 20190417
  Serious: Yes (Hospitalization, Other)
  Sender: FDA-Public Use
  Company Number: FR-AMGEN-FRANI2015071088

PATIENT
  Age: 45 Year
  Sex: Female
  Weight: 54 kg

DRUGS (21)
  1. DONORMYL [Concomitant]
     Dosage: UNK
     Route: 048
  2. AERIUS [Concomitant]
     Dosage: 1 DF, DAILY
     Dates: start: 20140407
  3. VENTOLINE [Concomitant]
     Active Substance: ALBUTEROL
     Dosage: 2 DF, DAILY
     Route: 065
     Dates: start: 20140407, end: 201404
  4. ETANERCEPT [Suspect]
     Active Substance: ETANERCEPT
     Indication: PSORIASIS
     Dosage: 50 MG, 2 TIMES/WK
     Route: 058
     Dates: start: 20131202, end: 20140306
  5. IZILOX [Concomitant]
     Active Substance: MOXIFLOXACIN HYDROCHLORIDE
     Dosage: UNK
     Route: 065
     Dates: start: 20141009, end: 20151024
  6. NASONEX [Concomitant]
     Active Substance: MOMETASONE FUROATE
     Dosage: 2 DF, DAILY
     Dates: start: 20140407
  7. DAIVOBET [Concomitant]
     Active Substance: BETAMETHASONE DIPROPIONATE\CALCIPOTRIENE
     Dosage: UNK, 1X/DAY
     Route: 065
     Dates: start: 20131202
  8. ETANERCEPT [Suspect]
     Active Substance: ETANERCEPT
     Dosage: 50 MG, QWK
     Route: 058
     Dates: start: 20140307, end: 20141009
  9. SYMBICORT [Concomitant]
     Active Substance: BUDESONIDE\FORMOTEROL FUMARATE DIHYDRATE
     Dosage: 200 MG, 2X/DAY
     Route: 048
  10. NASONEX [Concomitant]
     Active Substance: MOMETASONE FUROATE
     Dosage: 2 DF (SPRAY), DAILY
     Route: 065
     Dates: start: 20140407, end: 20140607
  11. FOLIC ACID. [Concomitant]
     Active Substance: FOLIC ACID
     Dosage: 5 MG, 2X/WEEK (5 MG,1 WK)
     Route: 048
     Dates: start: 201708
  12. ETANERCEPT [Suspect]
     Active Substance: ETANERCEPT
     Dosage: 50 MG, QWK
     Route: 058
     Dates: start: 20150507, end: 20150709
  13. METHOTREXATE SODIUM. [Suspect]
     Active Substance: METHOTREXATE SODIUM
     Dosage: 10 MG, WEEKLY
     Route: 058
     Dates: start: 20161013, end: 20170105
  14. ETANERCEPT [Suspect]
     Active Substance: ETANERCEPT
     Dosage: 50 MG, QWK
     Route: 058
     Dates: start: 20141109, end: 201504
  15. XYZALL [Concomitant]
     Active Substance: LEVOCETIRIZINE DIHYDROCHLORIDE
     Dosage: UNK, 2X/DAY
     Route: 048
  16. KETOPROFEN. [Concomitant]
     Active Substance: KETOPROFEN
     Indication: HEADACHE
     Dosage: 150 MG, (1 AS NECESSARY)
     Route: 048
     Dates: start: 20140407, end: 201404
  17. METHOTREXATE SODIUM. [Suspect]
     Active Substance: METHOTREXATE SODIUM
     Indication: PSORIASIS
     Dosage: 15 MG, WEEKLY
     Route: 048
     Dates: start: 20111027, end: 20121215
  18. METHOTREXATE SODIUM. [Suspect]
     Active Substance: METHOTREXATE SODIUM
     Dosage: 15 MG, WEEKLY
     Route: 058
     Dates: start: 20170105
  19. AERIUS [Concomitant]
     Dosage: 1 DF, DAILY
     Route: 065
     Dates: start: 20140407, end: 201404
  20. DEXERYL [Concomitant]
     Dosage: UNK, 1X/DAY
     Route: 065
     Dates: start: 20131202
  21. FOLIC ACID. [Concomitant]
     Active Substance: FOLIC ACID
     Dosage: 5 MG, 2X/WEEK
     Route: 048
     Dates: start: 20161013, end: 201706

REACTIONS (4)
  - Psoriasis [Unknown]
  - Intraductal proliferative breast lesion [Recovered/Resolved with Sequelae]
  - Condition aggravated [Unknown]
  - Intraductal proliferative breast lesion [Not Recovered/Not Resolved]

NARRATIVE: CASE EVENT DATE: 20150709
